FAERS Safety Report 19777041 (Version 1)
Quarter: 2021Q3

REPORT INFORMATION
  Report Type: Spontaneous
  Country: FR (occurrence: FR)
  Receive Date: 20210902
  Receipt Date: 20210902
  Transmission Date: 20211014
  Serious: Yes (Hospitalization)
  Sender: FDA-Public Use
  Company Number: FR-TEVA-2021-FR-1947233

PATIENT
  Age: 68 Year
  Sex: Female
  Weight: 53 kg

DRUGS (3)
  1. CARBOPLATINE [Suspect]
     Active Substance: CARBOPLATIN
     Indication: SMALL CELL LUNG CANCER
     Dosage: 2 CYCLES; UNIT DOSE: 1DF
     Route: 042
     Dates: start: 20210405, end: 20210426
  2. IMFINZI [Suspect]
     Active Substance: DURVALUMAB
     Indication: SMALL CELL LUNG CANCER
     Dosage: 2 CYCLES; UNIT DOSE: 1DF
     Route: 042
     Dates: start: 20210405, end: 20210426
  3. ETOPOSIDE. [Suspect]
     Active Substance: ETOPOSIDE
     Indication: SMALL CELL LUNG CANCER
     Dosage: 2 CYCLES; UNIT DOSE: 1DF
     Route: 042
     Dates: start: 20210405, end: 20210426

REACTIONS (2)
  - Tumour hyperprogression [Not Recovered/Not Resolved]
  - Cholangitis [Recovering/Resolving]

NARRATIVE: CASE EVENT DATE: 202105
